FAERS Safety Report 9374687 (Version 1)
Quarter: 2013Q2

REPORT INFORMATION
  Report Type: Spontaneous
  Country: US (occurrence: US)
  Receive Date: 20130628
  Receipt Date: 20130628
  Transmission Date: 20140414
  Serious: Yes (Hospitalization)
  Sender: FDA-Public Use
  Company Number: US-BAYER-2013-079515

PATIENT
  Age: 22 Year
  Sex: Female

DRUGS (3)
  1. OCELLA [Suspect]
  2. FERROUS SULFATE [Concomitant]
     Dosage: 325 MG, UNK
     Dates: start: 20110310, end: 20110508
  3. IRON [Concomitant]

REACTIONS (1)
  - Pulmonary embolism [None]
